FAERS Safety Report 17625772 (Version 12)
Quarter: 2021Q4

REPORT INFORMATION
  Report Type: Spontaneous
  Country: JP (occurrence: JP)
  Receive Date: 20200404
  Receipt Date: 20211120
  Transmission Date: 20220303
  Serious: Yes (Hospitalization, Other)
  Sender: FDA-Public Use
  Company Number: JP-ONO-2020JP008306

PATIENT
  Age: 43 Year
  Sex: Female
  Weight: 42.8 kg

DRUGS (59)
  1. PARSABIV [Suspect]
     Active Substance: ETELCALCETIDE HYDROCHLORIDE
     Indication: Hyperparathyroidism secondary
     Dosage: 2.5 MILLIGRAM, QWK
     Route: 010
     Dates: start: 20190816, end: 20201121
  2. PARSABIV [Suspect]
     Active Substance: ETELCALCETIDE HYDROCHLORIDE
     Dosage: 3.3 MILLIGRAM, QWK
     Route: 010
     Dates: start: 20201128
  3. ROCALTROL [Concomitant]
     Active Substance: CALCITRIOL
     Dosage: 1.0 UG
     Route: 042
     Dates: end: 20180129
  4. ROCALTROL [Concomitant]
     Active Substance: CALCITRIOL
     Dosage: 1.5 UG
     Route: 042
     Dates: end: 20180131
  5. ROCALTROL [Concomitant]
     Active Substance: CALCITRIOL
     Dosage: 1.5 UG, Q56H
     Route: 042
     Dates: start: 20180207, end: 20180907
  6. ROCALTROL [Concomitant]
     Active Substance: CALCITRIOL
     Dosage: 1.25 UG, QW
     Route: 042
     Dates: start: 20180917, end: 20181008
  7. ROCALTROL [Concomitant]
     Active Substance: CALCITRIOL
     Dosage: 1.5 UG, Q84H
     Route: 042
     Dates: start: 20181012, end: 20181214
  8. ROCALTROL [Concomitant]
     Active Substance: CALCITRIOL
     Dosage: 1 UG, QW
     Route: 042
     Dates: start: 20181015, end: 20181210
  9. ROCALTROL [Concomitant]
     Active Substance: CALCITRIOL
     Dosage: 1 UG, Q2W
     Route: 042
     Dates: start: 20190904, end: 20200902
  10. ROCALTROL [Concomitant]
     Active Substance: CALCITRIOL
     Dosage: 0.5 MICROGRAM, Q2WK
     Route: 042
     Dates: start: 20190828, end: 20200909
  11. ROCALTROL [Concomitant]
     Active Substance: CALCITRIOL
     Dosage: 1.5 UG, Q84H
     Route: 042
     Dates: start: 20180914, end: 20181010
  12. ROCALTROL [Concomitant]
     Active Substance: CALCITRIOL
     Dosage: 1.5 UG, Q56H
     Route: 042
     Dates: start: 20181217, end: 20181221
  13. ROCALTROL [Concomitant]
     Active Substance: CALCITRIOL
     Dosage: 1.5 UG, Q84H
     Route: 042
     Dates: start: 20181224, end: 20190104
  14. ROCALTROL [Concomitant]
     Active Substance: CALCITRIOL
     Dosage: 1 UG, QW
     Route: 042
     Dates: start: 20181226, end: 20190102
  15. ROCALTROL [Concomitant]
     Active Substance: CALCITRIOL
     Dosage: 1.5 UG, Q56H
     Route: 042
     Dates: start: 20190107, end: 20190202
  16. ROCALTROL [Concomitant]
     Active Substance: CALCITRIOL
     Dosage: 1.5 UG, Q84H
     Route: 042
     Dates: start: 20190204
  17. ROCALTROL [Concomitant]
     Active Substance: CALCITRIOL
     Dosage: 1 UG, Q2W
     Route: 042
     Dates: start: 20190206, end: 20190821
  18. ROCALTROL [Concomitant]
     Active Substance: CALCITRIOL
     Dosage: 1.5 UG, Q2W
     Route: 042
     Dates: start: 20190213, end: 20190814
  19. ROCALTROL [Concomitant]
     Active Substance: CALCITRIOL
     Dosage: 0.67 UG, QW
     Route: 042
     Dates: start: 20200916, end: 20201021
  20. ROCALTROL [Concomitant]
     Active Substance: CALCITRIOL
     Dosage: 0.5 UG, QW
     Route: 042
     Dates: start: 20201028, end: 20210310
  21. ROCALTROL [Concomitant]
     Active Substance: CALCITRIOL
     Dosage: 0.3 UG, QW
     Route: 042
     Dates: start: 20210317
  22. FERRIC CITRATE ANHYDROUS [Concomitant]
     Active Substance: FERRIC CITRATE ANHYDROUS
     Dosage: 2500 MG, EVERYDAY
     Route: 065
     Dates: end: 20190815
  23. FERRIC CITRATE ANHYDROUS [Concomitant]
     Active Substance: FERRIC CITRATE ANHYDROUS
     Dosage: 3000 MG, EVERYDAY
     Route: 065
     Dates: start: 20190816, end: 20200813
  24. FERRIC CITRATE ANHYDROUS [Concomitant]
     Active Substance: FERRIC CITRATE ANHYDROUS
     Dosage: 3250 MG, EVERYDAY
     Route: 065
     Dates: start: 20200814
  25. FERRIC HYDROXIDE [Concomitant]
     Active Substance: FERRIC HYDROXIDE
     Dosage: 1000 MG, EVERYDAY
     Route: 065
     Dates: start: 20180509, end: 20180814
  26. FERRIC HYDROXIDE [Concomitant]
     Active Substance: FERRIC HYDROXIDE
     Dosage: 1250 MG, EVERYDAY
     Route: 065
     Dates: start: 20180815, end: 20181009
  27. FERRIC HYDROXIDE [Concomitant]
     Active Substance: FERRIC HYDROXIDE
     Dosage: 2500 MG, EVERYDAY
     Route: 065
     Dates: start: 20181010, end: 20181129
  28. FERRIC HYDROXIDE [Concomitant]
     Active Substance: FERRIC HYDROXIDE
     Dosage: 3500 MG, EVERYDAY
     Route: 065
     Dates: start: 20181130, end: 20200710
  29. FERRIC HYDROXIDE [Concomitant]
     Active Substance: FERRIC HYDROXIDE
     Dosage: 3000 MG, EVERYDAY
     Route: 065
     Dates: start: 20200711
  30. MIRCERA [Concomitant]
     Active Substance: METHOXY POLYETHYLENE GLYCOL-EPOETIN BETA
     Dosage: 25 UG, QW
     Route: 065
     Dates: start: 20180914, end: 20181130
  31. MIRCERA [Concomitant]
     Active Substance: METHOXY POLYETHYLENE GLYCOL-EPOETIN BETA
     Dosage: 87.5 UG, QW
     Route: 065
     Dates: end: 20180824
  32. MIRCERA [Concomitant]
     Active Substance: METHOXY POLYETHYLENE GLYCOL-EPOETIN BETA
     Dosage: 50 UG, QW
     Route: 065
     Dates: start: 20180901, end: 20180907
  33. MIRCERA [Concomitant]
     Active Substance: METHOXY POLYETHYLENE GLYCOL-EPOETIN BETA
     Dosage: 37.5 UG, QW
     Route: 065
     Dates: start: 20181214, end: 20190316
  34. MIRCERA [Concomitant]
     Active Substance: METHOXY POLYETHYLENE GLYCOL-EPOETIN BETA
     Dosage: 18.75 UG, QW
     Route: 065
     Dates: start: 20190322, end: 20190705
  35. MIRCERA [Concomitant]
     Active Substance: METHOXY POLYETHYLENE GLYCOL-EPOETIN BETA
     Dosage: 25 UG, QW
     Route: 065
     Dates: start: 20190712, end: 20190906
  36. MIRCERA [Concomitant]
     Active Substance: METHOXY POLYETHYLENE GLYCOL-EPOETIN BETA
     Dosage: 50 UG, Q4W
     Route: 065
     Dates: start: 20190913, end: 20191108
  37. MIRCERA [Concomitant]
     Active Substance: METHOXY POLYETHYLENE GLYCOL-EPOETIN BETA
     Dosage: 25 UG, QW
     Route: 065
     Dates: start: 20191115, end: 20191213
  38. MIRCERA [Concomitant]
     Active Substance: METHOXY POLYETHYLENE GLYCOL-EPOETIN BETA
     Dosage: 16.7 UG, QW
     Route: 065
     Dates: start: 20191220, end: 20200214
  39. MIRCERA [Concomitant]
     Active Substance: METHOXY POLYETHYLENE GLYCOL-EPOETIN BETA
     Dosage: 25 UG, QW
     Route: 065
     Dates: start: 20200221, end: 20200228
  40. MIRCERA [Concomitant]
     Active Substance: METHOXY POLYETHYLENE GLYCOL-EPOETIN BETA
     Dosage: 25 UG, QW
     Route: 065
     Dates: start: 20200313, end: 20200327
  41. MIRCERA [Concomitant]
     Active Substance: METHOXY POLYETHYLENE GLYCOL-EPOETIN BETA
     Dosage: 25 UG, QW
     Route: 065
     Dates: start: 20200411, end: 20200418
  42. MIRCERA [Concomitant]
     Active Substance: METHOXY POLYETHYLENE GLYCOL-EPOETIN BETA
     Dosage: 25 UG, QW
     Route: 065
     Dates: start: 20200502, end: 20200606
  43. MIRCERA [Concomitant]
     Active Substance: METHOXY POLYETHYLENE GLYCOL-EPOETIN BETA
     Dosage: 25 UG, QW
     Route: 065
     Dates: start: 20200619, end: 20200704
  44. MIRCERA [Concomitant]
     Active Substance: METHOXY POLYETHYLENE GLYCOL-EPOETIN BETA
     Dosage: 25 UG, QW
     Route: 065
     Dates: start: 20200718, end: 20200731
  45. MIRCERA [Concomitant]
     Active Substance: METHOXY POLYETHYLENE GLYCOL-EPOETIN BETA
     Dosage: 25 UG, QW
     Route: 065
     Dates: start: 20200814, end: 20200829
  46. MIRCERA [Concomitant]
     Active Substance: METHOXY POLYETHYLENE GLYCOL-EPOETIN BETA
     Dosage: 25 UG, QW
     Route: 065
     Dates: start: 20200912, end: 20200926
  47. MIRCERA [Concomitant]
     Active Substance: METHOXY POLYETHYLENE GLYCOL-EPOETIN BETA
     Dosage: 25 UG, QW
     Route: 065
     Dates: start: 20201010, end: 20201024
  48. MIRCERA [Concomitant]
     Active Substance: METHOXY POLYETHYLENE GLYCOL-EPOETIN BETA
     Dosage: 25 UG, QW
     Route: 065
     Dates: start: 20201107, end: 20201121
  49. MIRCERA [Concomitant]
     Active Substance: METHOXY POLYETHYLENE GLYCOL-EPOETIN BETA
     Dosage: 25 UG, QW
     Route: 065
     Dates: start: 20201205, end: 20201219
  50. MIRCERA [Concomitant]
     Active Substance: METHOXY POLYETHYLENE GLYCOL-EPOETIN BETA
     Dosage: 25 UG, QW
     Route: 065
     Dates: start: 20210102, end: 20210402
  51. MIRCERA [Concomitant]
     Active Substance: METHOXY POLYETHYLENE GLYCOL-EPOETIN BETA
     Dosage: 25 UG, QW
     Route: 065
     Dates: start: 20210416, end: 20210501
  52. MIRCERA [Concomitant]
     Active Substance: METHOXY POLYETHYLENE GLYCOL-EPOETIN BETA
     Dosage: 25 UG, QW
     Route: 065
     Dates: start: 20210514, end: 20210528
  53. CALTAN [Concomitant]
     Active Substance: CALCIUM CARBONATE
     Dosage: 250 MG, EVERYDAY
     Route: 048
     Dates: start: 20200214, end: 20200313
  54. CALTAN [Concomitant]
     Active Substance: CALCIUM CARBONATE
     Dosage: 500 MG, EVERYDAY
     Route: 048
     Dates: start: 20200314, end: 20200710
  55. CALTAN [Concomitant]
     Active Substance: CALCIUM CARBONATE
     Dosage: 1000 MG, EVERYDAY
     Route: 048
     Dates: start: 20200711, end: 20210909
  56. CALTAN [Concomitant]
     Active Substance: CALCIUM CARBONATE
     Dosage: 750 MG, EVERYDAY
     Route: 048
     Dates: start: 20210910
  57. IRON SUCROSE [Concomitant]
     Active Substance: IRON SUCROSE
     Dosage: 40 MG, Q4W
     Route: 065
     Dates: start: 20200115
  58. FOSRENOL [Concomitant]
     Active Substance: LANTHANUM CARBONATE
     Dosage: 500 MG, EVERYDAY
     Route: 048
     Dates: start: 20190301, end: 20190315
  59. FOSRENOL [Concomitant]
     Active Substance: LANTHANUM CARBONATE
     Dosage: 1000 MG, EVERYDAY
     Route: 048
     Dates: start: 20190316

REACTIONS (3)
  - Shunt occlusion [Recovered/Resolved]
  - Shunt occlusion [Recovered/Resolved]
  - Shunt occlusion [Recovered/Resolved]

NARRATIVE: CASE EVENT DATE: 20191123
